FAERS Safety Report 17269425 (Version 1)
Quarter: 2020Q1

REPORT INFORMATION
  Report Type: Spontaneous
  Country: US (occurrence: US)
  Receive Date: 20200114
  Receipt Date: 20200114
  Transmission Date: 20200409
  Serious: Yes (Death, Other)
  Sender: FDA-Public Use
  Company Number: NVSC2020US006019

PATIENT
  Age: 32 Year
  Sex: Male

DRUGS (1)
  1. BUPROPION. [Suspect]
     Active Substance: BUPROPION
     Indication: INTENTIONAL SELF-INJURY
     Dosage: UNK
     Route: 065

REACTIONS (9)
  - Somnolence [Unknown]
  - Hypotension [Unknown]
  - Electrocardiogram QRS complex prolonged [Unknown]
  - Acute kidney injury [Unknown]
  - Electrocardiogram QT prolonged [Unknown]
  - Metabolic acidosis [Unknown]
  - Cardiotoxicity [Fatal]
  - Suicide attempt [Fatal]
  - Generalised tonic-clonic seizure [Unknown]
